FAERS Safety Report 4516014-7 (Version None)
Quarter: 2004Q4

REPORT INFORMATION
  Report Type: 
  Country: None (occurrence: None)
  Receive Date: 20041129
  Receipt Date: 20041117
  Transmission Date: 20050328
  Serious: Yes (Hospitalization)
  Sender: FDA-Public Use
  Company Number: 200421462GDDC

PATIENT
  Age: 55 Year
  Sex: Male

DRUGS (9)
  1. ARAVA [Suspect]
     Indication: RHEUMATOID ARTHRITIS
     Dosage: 20 MG/DAY PO
     Route: 048
     Dates: start: 20020101, end: 20041110
  2. LANSOPRAZOLE [Concomitant]
  3. CELECOXIB [Concomitant]
  4. FELODIPINE [Concomitant]
  5. HYDROXYCHLOROQUINE [Concomitant]
  6. ATENOLOL [Concomitant]
  7. PREDNISOLONE [Concomitant]
  8. COLECALCIFEROL [Concomitant]
  9. CALCIUM CARBONATE (CALCICHEW D3) [Concomitant]

REACTIONS (1)
  - HEPATIC ENZYME INCREASED [None]
